FAERS Safety Report 9537537 (Version 2)
Quarter: 2013Q4

REPORT INFORMATION
  Report Type: Spontaneous
  Country: IT (occurrence: IT)
  Receive Date: 20130919
  Receipt Date: 20131119
  Transmission Date: 20140711
  Serious: Yes (Hospitalization)
  Sender: FDA-Public Use
  Company Number: IT-MYLANLABS-2013S1020367

PATIENT
  Age: 79 Year
  Sex: Female

DRUGS (1)
  1. REPAGLINIDE [Suspect]
     Indication: PRODUCT USED FOR UNKNOWN INDICATION
     Route: 048
     Dates: start: 20130101, end: 20130805

REACTIONS (3)
  - Hypoglycaemia [Recovered/Resolved]
  - Aphasia [Recovered/Resolved]
  - Sopor [Recovered/Resolved]
